FAERS Safety Report 9900014 (Version 1)
Quarter: 2014Q1

REPORT INFORMATION
  Report Type: Spontaneous
  Country: US (occurrence: US)
  Receive Date: 20140214
  Receipt Date: 20140214
  Transmission Date: 20141002
  Serious: No
  Sender: FDA-Public Use
  Company Number: US-VIVUS-2014V1000004

PATIENT
  Age: 59 Year
  Sex: Female
  Weight: 96.7 kg

DRUGS (15)
  1. QSYMIA 3.75MG/23MG [Suspect]
     Indication: WEIGHT DECREASED
     Route: 048
     Dates: start: 20131215, end: 20131228
  2. QSYMIA 7.5MG/46MG [Suspect]
     Indication: WEIGHT DECREASED
     Route: 048
     Dates: start: 20131229
  3. METFORMIN [Concomitant]
     Indication: DIABETES MELLITUS
     Route: 048
  4. LISINOPRIL/HCTZ [Concomitant]
     Indication: HYPERTENSION
     Dosage: 20MG/12.5MG
     Route: 048
  5. METOPROLOL [Concomitant]
     Indication: HYPERTENSION
     Route: 048
  6. RANITIDINE [Concomitant]
     Indication: GASTROOESOPHAGEAL REFLUX DISEASE
     Route: 048
  7. PLAVIX [Concomitant]
     Indication: STENT PLACEMENT
     Route: 048
  8. ASPIRIN [Concomitant]
     Indication: PROPHYLAXIS
     Route: 048
  9. ATORVASTATIN CALCIUM [Concomitant]
     Indication: BLOOD CHOLESTEROL INCREASED
     Route: 048
  10. ISOSORBIDE [Concomitant]
     Indication: CARDIAC DISORDER
     Route: 048
  11. LYRICA [Concomitant]
     Indication: FIBROMYALGIA
     Route: 048
  12. LYRICA [Concomitant]
     Indication: DIABETIC FOOT
  13. CENTRUM SILVER MVI [Concomitant]
     Indication: VITAMIN SUPPLEMENTATION
     Route: 048
  14. PHILLIP^S PROBIOTIC [Concomitant]
     Indication: SUPPLEMENTATION THERAPY
     Route: 048
  15. FIBER [Concomitant]
     Indication: SUPPLEMENTATION THERAPY
     Route: 048

REACTIONS (5)
  - Insomnia [Recovered/Resolved]
  - Dizziness [Not Recovered/Not Resolved]
  - Headache [Not Recovered/Not Resolved]
  - Hypoaesthesia [Not Recovered/Not Resolved]
  - Paraesthesia [Not Recovered/Not Resolved]
